FAERS Safety Report 5141772-0 (Version None)
Quarter: 2006Q4

REPORT INFORMATION
  Report Type: 
  Country: None (occurrence: None)
  Receive Date: 20061101
  Receipt Date: 20061005
  Transmission Date: 20070319
  Serious: Yes (Hospitalization, Other)
  Sender: FDA-Public Use
  Company Number: KR-BRISTOL-MYERS SQUIBB COMPANY-13531389

PATIENT
  Age: 53 Year
  Sex: Male
  Weight: 72 kg

DRUGS (20)
  1. CISPLATIN [Suspect]
     Indication: NON-SMALL CELL LUNG CANCER
     Route: 042
     Dates: start: 20060823, end: 20060823
  2. ETOPOSIDE [Suspect]
     Indication: NON-SMALL CELL LUNG CANCER
     Route: 042
     Dates: start: 20060820, end: 20060820
  3. RADIATION THERAPY [Suspect]
     Indication: NON-SMALL CELL LUNG CANCER
     Dates: start: 20060719
  4. OXYCODONE HCL [Concomitant]
     Dates: start: 20060706
  5. ACETYLCYSTEINE [Concomitant]
     Indication: COUGH
     Dates: start: 20060630
  6. CIMETIDINE [Concomitant]
     Dates: start: 20060710, end: 20060917
  7. MAGNESIUM SULFATE [Concomitant]
     Indication: CONSTIPATION
     Dates: start: 20060725
  8. DOMPERIDONE [Concomitant]
     Dates: start: 20060630, end: 20060917
  9. SUCRALFATE [Concomitant]
     Dates: start: 20060721
  10. HYDROCHLOROTHIAZIDE [Concomitant]
     Indication: HYPERTENSION
     Dates: start: 20060724, end: 20060907
  11. ATENOLOL [Concomitant]
     Dates: start: 20060724
  12. MUPIROCIN [Concomitant]
     Indication: SKIN EROSION
     Dates: start: 20060822
  13. CHLORPHENIRAMINE MALEATE [Concomitant]
     Indication: URTICARIA
     Dates: start: 20060830
  14. CEFTRIAXONE SODIUM [Concomitant]
     Dates: end: 20060915
  15. CHLORHEXIDINE GLUCONATE [Concomitant]
     Dates: end: 20060920
  16. ONDANSETRON HCL [Concomitant]
     Dates: end: 20060914
  17. AMINO ACIDS [Concomitant]
     Indication: ANOREXIA
     Dates: end: 20060928
  18. ELECTROLYTES [Concomitant]
     Indication: ANOREXIA
     Dates: end: 20060928
  19. SORBITOL [Concomitant]
     Indication: ANOREXIA
     Dates: end: 20060928
  20. XYLITOL [Concomitant]
     Indication: ANOREXIA
     Dates: end: 20060928

REACTIONS (3)
  - ANAEMIA HAEMOLYTIC AUTOIMMUNE [None]
  - NEUTROPENIA [None]
  - THROMBOCYTOPENIA [None]
